FAERS Safety Report 4665696-8 (Version None)
Quarter: 2005Q2

REPORT INFORMATION
  Report Type: 
  Country: None (occurrence: None)
  Receive Date: 20050517
  Receipt Date: 20050503
  Transmission Date: 20051028
  Serious: Yes (Hospitalization, Other)
  Sender: FDA-Public Use
  Company Number: USA050597202

PATIENT
  Age: 39 Year
  Sex: Female

DRUGS (2)
  1. SARAFEM [Suspect]
     Indication: PREMENSTRUAL SYNDROME
     Dates: end: 20010101
  2. PROZAC [Suspect]
     Indication: PREMENSTRUAL SYNDROME

REACTIONS (5)
  - CRYING [None]
  - DRUG INEFFECTIVE [None]
  - FEELING ABNORMAL [None]
  - GASTRIC BYPASS [None]
  - WEIGHT INCREASED [None]
